FAERS Safety Report 11525947 (Version 2)
Quarter: 2015Q4

REPORT INFORMATION
  Report Type: Other
  Country: FR (occurrence: FR)
  Receive Date: 20150918
  Receipt Date: 20151009
  Transmission Date: 20160304
  Serious: Yes (Other)
  Sender: FDA-Public Use
  Company Number: FR-CONCORDIA PHARMACEUTICALS INC.-CO-PL-FR-2015-225

PATIENT
  Age: 77 Year
  Sex: Female

DRUGS (3)
  1. HYDROXYCHLOROQUINE SULFATE. [Suspect]
     Active Substance: HYDROXYCHLOROQUINE SULFATE
     Indication: ENDOCARDITIS
     Route: 065
  2. HYDROXYCHLOROQUINE SULFATE. [Suspect]
     Active Substance: HYDROXYCHLOROQUINE SULFATE
     Indication: WHIPPLE^S DISEASE
     Route: 065
  3. DOXYCYCLINE. [Concomitant]
     Active Substance: DOXYCYCLINE

REACTIONS (7)
  - Product use issue [Recovered/Resolved]
  - Ventricular hypokinesia [Recovered/Resolved]
  - Cardiotoxicity [Recovered/Resolved]
  - Ejection fraction decreased [Recovered/Resolved]
  - Tachycardia [Recovered/Resolved]
  - Cardiac function test abnormal [Recovered/Resolved]
  - Sinus tachycardia [Recovered/Resolved]
